FAERS Safety Report 9604314 (Version 3)
Quarter: 2013Q4

REPORT INFORMATION
  Report Type: Report from Study
  Country: TH (occurrence: TH)
  Receive Date: 20131008
  Receipt Date: 20131029
  Transmission Date: 20140711
  Serious: Yes (Other)
  Sender: FDA-Public Use
  Company Number: PHHY2013TH106635

PATIENT
  Age: 47 Year
  Sex: Female
  Weight: 44 kg

DRUGS (3)
  1. GLIVEC [Suspect]
     Indication: CHRONIC MYELOID LEUKAEMIA
     Dosage: 400 MG PER DAY
     Route: 048
     Dates: start: 20100824, end: 20101220
  2. GLIVEC [Suspect]
     Dosage: 300 MG PER DAY
     Route: 048
     Dates: start: 20101221
  3. GLIVEC [Suspect]
     Dosage: 600 MG PER DAY
     Route: 048
     Dates: start: 20130515

REACTIONS (9)
  - Bile duct stone [Unknown]
  - Amylase increased [Recovering/Resolving]
  - Lipase increased [Recovering/Resolving]
  - Chronic myeloid leukaemia [Unknown]
  - Leukaemia recurrent [Unknown]
  - Neutropenia [Unknown]
  - Thrombocytopenia [Unknown]
  - Hypokalaemia [Unknown]
  - Therapeutic response decreased [Unknown]
